FAERS Safety Report 5494188-1 (Version None)
Quarter: 2007Q4

REPORT INFORMATION
  Report Type: 
  Country: None (occurrence: None)
  Receive Date: 20071024
  Receipt Date: 20071017
  Transmission Date: 20080405
  Serious: Yes (Other)
  Sender: FDA-Public Use
  Company Number: PHEH2007US13791

PATIENT
  Sex: Male

DRUGS (3)
  1. LAMISIL [Suspect]
     Route: 048
  2. VYTORIN [Concomitant]
  3. DIOVAN [Concomitant]

REACTIONS (1)
  - PANIC ATTACK [None]
